FAERS Safety Report 8446845-2 (Version None)
Quarter: 2012Q2

REPORT INFORMATION
  Report Type: 
  Country: None (occurrence: None)
  Receive Date: 20120612
  Receipt Date: 20120612
  Transmission Date: 20120825
  Serious: Yes (Other)
  Sender: FDA-Public Use
  Company Number: None

PATIENT
  Age: 67 Year
  Sex: Female

DRUGS (1)
  1. NAPROXEN [Suspect]
     Indication: ARTHRITIS
     Dosage: 500 MG, 2 TIMES A DAY, PO
     Route: 048
     Dates: start: 20120518, end: 20120522

REACTIONS (3)
  - ABDOMINAL PAIN UPPER [None]
  - VOMITING [None]
  - UNEVALUABLE EVENT [None]
